FAERS Safety Report 6161472-8 (Version None)
Quarter: 2009Q2

REPORT INFORMATION
  Report Type: 
  Country: None (occurrence: None)
  Receive Date: 20090417
  Receipt Date: 20090417
  Transmission Date: 20091009
  Serious: No
  Sender: FDA-Public Use
  Company Number: None

PATIENT
  Sex: Female
  Weight: 241 kg

DRUGS (13)
  1. SPIRONOLACTONE [Suspect]
     Dosage: 25MG TABLET 25 MG QD ORAL
     Route: 048
     Dates: start: 20090402, end: 20090416
  2. ASPIRIN [Concomitant]
  3. ATENOLOL [Concomitant]
  4. EPI PEN (EPINEPHRINE AUTOINJECTOR) [Concomitant]
  5. HYDROCHLOROTHIAZIDE [Concomitant]
  6. KLONOPIN [Concomitant]
  7. LIPITOR [Concomitant]
  8. LISINOPRIL [Concomitant]
  9. LOPROX GEL [Concomitant]
  10. MULTI-VITAMINS [Concomitant]
  11. OMEPRAZOLE [Concomitant]
  12. PROZAC [Concomitant]
  13. VALISONE SOLUTION [Concomitant]

REACTIONS (1)
  - RENAL IMPAIRMENT [None]
